FAERS Safety Report 20923458 (Version 1)
Quarter: 2022Q2

REPORT INFORMATION
  Report Type: Spontaneous
  Country: US (occurrence: US)
  Receive Date: 20220607
  Receipt Date: 20220607
  Transmission Date: 20220721
  Serious: Yes (Other)
  Sender: FDA-Public Use
  Company Number: US-SA-2022SA203584

PATIENT
  Age: 73 Year
  Sex: Male

DRUGS (3)
  1. RIFAMPIN [Suspect]
     Active Substance: RIFAMPIN
     Indication: Pneumococcal infection
     Dosage: 300 MG, BID
     Dates: start: 200104
  2. VANCOMYCIN [Concomitant]
     Active Substance: VANCOMYCIN
     Indication: Pneumococcal infection
     Dosage: 1 G, Q12H
     Route: 042
     Dates: start: 2001
  3. LEVOFLOXACIN [Concomitant]
     Active Substance: LEVOFLOXACIN
     Indication: Pneumococcal infection
     Dosage: 500 MG, QD
     Route: 048
     Dates: start: 2001

REACTIONS (3)
  - Neuropathy peripheral [Recovered/Resolved]
  - Myalgia [Recovered/Resolved]
  - Sleep disorder [Recovered/Resolved]

NARRATIVE: CASE EVENT DATE: 20010701
